FAERS Safety Report 7630712-8 (Version None)
Quarter: 2011Q3

REPORT INFORMATION
  Report Type: 
  Country: None (occurrence: None)
  Receive Date: 20110722
  Receipt Date: 20110720
  Transmission Date: 20111222
  Serious: Yes (Death, Other)
  Sender: FDA-Public Use
  Company Number: US-ASTRAZENECA-2008UW26984

PATIENT
  Age: 39 Year
  Sex: Male
  Weight: 65.8 kg

DRUGS (10)
  1. GEODON [Concomitant]
     Dates: start: 20070302
  2. SEROQUEL [Suspect]
     Indication: DEPRESSION
     Route: 048
     Dates: start: 20040101, end: 20070201
  3. GEODON [Concomitant]
     Dates: start: 20070101
  4. LIPITOR [Concomitant]
     Dates: start: 20041005
  5. LEXAPRO [Concomitant]
     Dates: start: 20070101, end: 20090101
  6. LEXAPRO [Concomitant]
     Dates: start: 20070217
  7. SEROQUEL [Suspect]
     Route: 048
     Dates: start: 20040510
  8. PREVACID [Concomitant]
     Dates: start: 20041005
  9. BUSPAR [Concomitant]
     Dates: start: 20041005
  10. KLONOPIN [Concomitant]
     Dates: start: 20070217, end: 20070302

REACTIONS (9)
  - POLYNEUROPATHY ALCOHOLIC [None]
  - DIABETES MELLITUS INADEQUATE CONTROL [None]
  - ABSCESS [None]
  - HYPERTENSIVE HEART DISEASE [None]
  - TYPE 2 DIABETES MELLITUS [None]
  - BLOOD PRESSURE DIASTOLIC INCREASED [None]
  - DIABETIC NEUROPATHY [None]
  - BLOOD CHOLESTEROL INCREASED [None]
  - VISION BLURRED [None]
